FAERS Safety Report 5789276-6 (Version None)
Quarter: 2008Q2

REPORT INFORMATION
  Report Type: 
  Country: None (occurrence: None)
  Receive Date: 20080625
  Receipt Date: 20080625
  Transmission Date: 20081010
  Serious: Yes (Hospitalization)
  Sender: FDA-Public Use
  Company Number: None

PATIENT
  Sex: Female
  Weight: 72 kg

DRUGS (1)
  1. ACYCLOVIR [Suspect]
     Indication: MULTIPLE SCLEROSIS
     Dosage: 700MG Q8H IV
     Route: 042
     Dates: start: 20080601, end: 20080603

REACTIONS (1)
  - MENINGITIS VIRAL [None]
